FAERS Safety Report 9973357 (Version 1)
Quarter: 2014Q1

REPORT INFORMATION
  Report Type: Spontaneous
  Country: US (occurrence: US)
  Receive Date: 20140306
  Receipt Date: 20140306
  Transmission Date: 20141002
  Serious: Yes (Hospitalization)
  Sender: FDA-Public Use
  Company Number: US-TEVA-466934USA

PATIENT
  Age: 44 Year
  Sex: Male

DRUGS (2)
  1. CISPLATIN [Suspect]
     Indication: PANCREATIC CARCINOMA METASTATIC
     Dosage: ON D1, 15 OF 4-W CYCLE
     Route: 065
  2. GEMCITABINE [Concomitant]
     Indication: PANCREATIC CARCINOMA METASTATIC
     Dosage: ON D1, 8, 15 OF 4-W CYCLE
     Route: 065

REACTIONS (6)
  - Blood pressure increased [Recovering/Resolving]
  - Aortic dissection [Recovering/Resolving]
  - Carotid artery dissection [Recovering/Resolving]
  - Peripheral artery dissection [Recovered/Resolved]
  - Pleural effusion [Recovering/Resolving]
  - Atelectasis [Recovering/Resolving]
